FAERS Safety Report 8467004-3 (Version None)
Quarter: 2012Q2

REPORT INFORMATION
  Report Type: 
  Country: None (occurrence: None)
  Receive Date: 20120626
  Receipt Date: 20120611
  Transmission Date: 20120825
  Serious: Yes (Other)
  Sender: FDA-Public Use
  Company Number: DE-ARROW GEN-2012-10113

PATIENT
  Sex: Female
  Weight: 3 kg

DRUGS (3)
  1. LAMOTRIGINE [Suspect]
     Indication: EPILEPSY
     Dosage: 650 [MG/D ]/300MG-0-350MG
     Route: 064
     Dates: start: 20110409, end: 20120113
  2. FOLIC ACID [Concomitant]
     Indication: PROPHYLAXIS OF NEURAL TUBE DEFECT
     Dosage: 0.4 [MG/D ]
     Route: 064
     Dates: start: 20110409, end: 20120113
  3. LEVOTHYROXINE [Concomitant]
     Indication: HYPOTHYROIDISM
     Dosage: 50 [+#956;G/D ]
     Route: 064
     Dates: start: 20110409, end: 20120113

REACTIONS (2)
  - POOR WEIGHT GAIN NEONATAL [None]
  - SOMNOLENCE [None]
